FAERS Safety Report 8553764-X (Version None)
Quarter: 2012Q3

REPORT INFORMATION
  Report Type: 
  Country: None (occurrence: None)
  Receive Date: 20120731
  Receipt Date: 20120723
  Transmission Date: 20120928
  Serious: Yes (Other)
  Sender: FDA-Public Use
  Company Number: GB-GLAXOSMITHKLINE-B0816329A

PATIENT
  Age: 39 Year
  Sex: Male
  Weight: 64 kg

DRUGS (3)
  1. LAMOTRIGINE [Suspect]
     Indication: EPILEPSY
     Dosage: 75MG PER DAY
     Dates: start: 20080101
  2. LAMOTRIGINE [Suspect]
     Dosage: 100MG PER DAY
  3. LORATADINE [Concomitant]
     Indication: SEASONAL ALLERGY
     Dosage: 1IUAX PER DAY

REACTIONS (10)
  - ERYTHEMA [None]
  - MALAISE [None]
  - EAR DISCOMFORT [None]
  - SLOW RESPONSE TO STIMULI [None]
  - SOMNOLENCE [None]
  - PRURITUS [None]
  - FATIGUE [None]
  - DERMATITIS ALLERGIC [None]
  - FEELING HOT [None]
  - RASH [None]
